FAERS Safety Report 4336089-8 (Version None)
Quarter: 2004Q2

REPORT INFORMATION
  Report Type: 
  Country: None (occurrence: None)
  Receive Date: 20040406
  Receipt Date: 20040329
  Transmission Date: 20050107
  Serious: Yes (Other)
  Sender: FDA-Public Use
  Company Number: 1515-055

PATIENT

DRUGS (1)
  1. DEXAMETHASONE [Suspect]
     Indication: ACUTE RESPIRATORY DISTRESS SYNDROME
     Dosage: 0.25/KG Q 12H X1WK THEN

REACTIONS (6)
  - BODY HEIGHT BELOW NORMAL [None]
  - COGNITIVE DISORDER [None]
  - DEVELOPMENTAL COORDINATION DISORDER [None]
  - HEAD CIRCUMFERENCE ABNORMAL [None]
  - INTELLIGENCE TEST ABNORMAL [None]
  - PSYCHOMOTOR SKILLS IMPAIRED [None]
